FAERS Safety Report 8793298 (Version 2)
Quarter: 2015Q1

REPORT INFORMATION
  Report Type: Report from Study
  Country: US (occurrence: US)
  Receive Date: 20120918
  Receipt Date: 20150326
  Transmission Date: 20150721
  Serious: Yes (Death)
  Sender: FDA-Public Use
  Company Number: US-ROCHE-1125811

PATIENT
  Sex: Male

DRUGS (13)
  1. AVASTIN [Suspect]
     Active Substance: BEVACIZUMAB
     Indication: COLON CANCER
     Route: 042
     Dates: start: 20060314
  2. AVASTIN [Suspect]
     Active Substance: BEVACIZUMAB
     Indication: BONE CANCER
  3. DECADRON [Concomitant]
     Active Substance: DEXAMETHASONE
     Route: 042
  4. BENADRYL [Concomitant]
     Active Substance: DIPHENHYDRAMINE HYDROCHLORIDE
     Route: 042
  5. ATIVAN [Concomitant]
     Active Substance: LORAZEPAM
     Route: 042
  6. OXALIPLATIN. [Concomitant]
     Active Substance: OXALIPLATIN
     Route: 042
  7. ZOFRAN [Concomitant]
     Active Substance: ONDANSETRON HYDROCHLORIDE
     Route: 042
  8. KYTRIL [Concomitant]
     Active Substance: GRANISETRON HYDROCHLORIDE
     Route: 042
  9. SOLU-MEDROL [Concomitant]
     Active Substance: METHYLPREDNISOLONE SODIUM SUCCINATE
     Route: 042
  10. ANZEMET [Concomitant]
     Active Substance: DOLASETRON MESYLATE
     Route: 042
  11. LASIX [Concomitant]
     Active Substance: FUROSEMIDE
     Route: 042
  12. LEUCOVORIN [Concomitant]
     Active Substance: LEUCOVORIN
     Route: 042
  13. 5-FLUOROURACIL [Concomitant]
     Active Substance: FLUOROURACIL
     Route: 042

REACTIONS (5)
  - Rash [Unknown]
  - Death [Fatal]
  - Fatigue [Unknown]
  - Leukopenia [Unknown]
  - Thrombocytopenia [Unknown]
